FAERS Safety Report 6767676-5 (Version None)
Quarter: 2010Q2

REPORT INFORMATION
  Report Type: 
  Country: None (occurrence: None)
  Receive Date: 20100614
  Receipt Date: 20100601
  Transmission Date: 20101027
  Serious: Yes (Hospitalization, Other)
  Sender: FDA-Public Use
  Company Number: US-ELI_LILLY_AND_COMPANY-US201006001065

PATIENT
  Sex: Male

DRUGS (7)
  1. FORTEO [Suspect]
     Dosage: 20 UG, DAILY (1/D)
     Dates: start: 20090901
  2. FLEXERIL [Concomitant]
     Dosage: 10 MG, 2/D
  3. COUMADIN [Concomitant]
  4. OXYCODONE [Concomitant]
     Dosage: 5 MG, UNKNOWN
  5. NEURONTIN [Concomitant]
  6. SEROQUEL [Concomitant]
     Dosage: 100 MG, UNKNOWN
  7. VITAMIN D [Concomitant]

REACTIONS (2)
  - ARTHROPATHY [None]
  - OSTEONECROSIS [None]
